FAERS Safety Report 20636668 (Version 2)
Quarter: 2022Q2

REPORT INFORMATION
  Report Type: Report from Study
  Country: CN (occurrence: CN)
  Receive Date: 20220325
  Receipt Date: 20220401
  Transmission Date: 20220720
  Serious: Yes (Hospitalization)
  Sender: FDA-Public Use
  Company Number: CN-SECURA BIO, INC.-2022-SECUR-CN000024

PATIENT

DRUGS (4)
  1. DUVELISIB [Suspect]
     Active Substance: DUVELISIB
     Indication: Follicular lymphoma
     Dosage: 25 MG, BID
     Route: 048
     Dates: start: 20200310, end: 20220308
  2. Gu ben yi chang [Concomitant]
     Indication: Abdominal discomfort
     Dosage: 4 DF, TID
     Route: 048
     Dates: start: 20220301
  3. Clostridium butyricum capsules, live [Concomitant]
     Indication: Abdominal discomfort
     Dosage: 2 GRAIN, TID
     Route: 048
     Dates: start: 20220301
  4. Compound glutamine [Concomitant]
     Indication: Abdominal discomfort
     Dosage: 2 GRAIN, TID
     Route: 048
     Dates: start: 20220301

REACTIONS (1)
  - Diarrhoea [Not Recovered/Not Resolved]

NARRATIVE: CASE EVENT DATE: 20220311
